FAERS Safety Report 23472507 (Version 1)
Quarter: 2024Q1

REPORT INFORMATION
  Report Type: Spontaneous
  Country: US (occurrence: US)
  Receive Date: 20240202
  Receipt Date: 20240202
  Transmission Date: 20240410
  Serious: Yes (Other)
  Sender: FDA-Public Use
  Company Number: US-SUNOVION-2024SUN000083AA

PATIENT

DRUGS (9)
  1. APTIOM [Suspect]
     Active Substance: ESLICARBAZEPINE ACETATE
     Indication: Partial seizures with secondary generalisation
     Dosage: 1200 MG
     Route: 048
  2. APTIOM [Suspect]
     Active Substance: ESLICARBAZEPINE ACETATE
     Indication: Partial seizures
     Dosage: 1600 MG, HS (800 MG 2 TABLETS)
     Route: 048
     Dates: start: 20231103
  3. APTIOM [Suspect]
     Active Substance: ESLICARBAZEPINE ACETATE
     Dosage: 1800 MG, QD (600MG 3 TABLETS)
     Route: 048
     Dates: start: 20231201
  4. KLONOPIN [Concomitant]
     Active Substance: CLONAZEPAM
     Indication: Agitation
     Dosage: 0.5 MG, AS NECESSARY
     Route: 065
     Dates: start: 20220607
  5. INVEGA [Concomitant]
     Active Substance: PALIPERIDONE
     Dosage: 7.5 MG, QD (1.5 MG AND 6MG)
     Route: 048
     Dates: start: 20230427
  6. INVEGA [Concomitant]
     Active Substance: PALIPERIDONE
     Dosage: 6 MG, QD
     Route: 048
  7. DESYREL [Concomitant]
     Active Substance: TRAZODONE HYDROCHLORIDE
     Dosage: 50 MG, 1-3 TABLETS HS
     Route: 065
  8. COGENTIN [Concomitant]
     Active Substance: BENZTROPINE MESYLATE
     Dosage: 0.5 MG
     Route: 048
  9. INDERAL [Concomitant]
     Active Substance: PROPRANOLOL HYDROCHLORIDE
     Dosage: 20 MG, QD
     Route: 048

REACTIONS (6)
  - Seizure [Unknown]
  - Generalised tonic-clonic seizure [Unknown]
  - Agitation [Unknown]
  - Aggression [Unknown]
  - Insomnia [Unknown]
  - Prescribed overdose [Unknown]

NARRATIVE: CASE EVENT DATE: 20231202
